FAERS Safety Report 7954723-8 (Version None)
Quarter: 2011Q4

REPORT INFORMATION
  Report Type: 
  Country: None (occurrence: None)
  Receive Date: 20111202
  Receipt Date: 20111122
  Transmission Date: 20120403
  Serious: Yes (Hospitalization, Other)
  Sender: FDA-Public Use
  Company Number: FR-JNJFOC-20110310912

PATIENT
  Sex: Male
  Weight: 56 kg

DRUGS (9)
  1. PREDNISONE TAB [Concomitant]
  2. REMICADE [Suspect]
     Route: 042
     Dates: start: 20100930
  3. HUMIRA [Concomitant]
     Dates: start: 20110104
  4. BLOOD TRANSFUSION [Concomitant]
  5. REMICADE [Suspect]
     Indication: CROHN'S DISEASE
     Route: 042
     Dates: start: 20101116, end: 20101119
  6. REMICADE [Suspect]
     Route: 042
     Dates: start: 20091029
  7. HUMIRA [Concomitant]
     Dates: start: 20101215
  8. MESALAMINE [Concomitant]
     Route: 048
  9. HUMIRA [Concomitant]
     Dates: start: 20110118

REACTIONS (1)
  - COLITIS [None]
